FAERS Safety Report 13931235 (Version 3)
Quarter: 2017Q4

REPORT INFORMATION
  Report Type: Spontaneous
  Country: JP (occurrence: JP)
  Receive Date: 20170903
  Receipt Date: 20171019
  Transmission Date: 20180320
  Serious: Yes (Disabling)
  Sender: FDA-Public Use
  Company Number: JP-AMGEN-JPNSP2017133769

PATIENT
  Age: 65 Year
  Sex: Male
  Weight: 59 kg

DRUGS (3)
  1. RANMARK [Suspect]
     Active Substance: DENOSUMAB
     Indication: PROSTATE CANCER
  2. CABAZITAXEL [Suspect]
     Active Substance: CABAZITAXEL
     Indication: PRODUCT USED FOR UNKNOWN INDICATION
     Dosage: UNK
     Route: 065
  3. RANMARK [Suspect]
     Active Substance: DENOSUMAB
     Indication: METASTASES TO BONE
     Dosage: 120 MG, Q4WK
     Route: 058
     Dates: start: 20150212, end: 20160623

REACTIONS (1)
  - Osteonecrosis of jaw [Recovered/Resolved with Sequelae]

NARRATIVE: CASE EVENT DATE: 20160725
